FAERS Safety Report 6294851-9 (Version None)
Quarter: 2009Q3

REPORT INFORMATION
  Report Type: 
  Country: None (occurrence: None)
  Receive Date: 20090803
  Receipt Date: 20090730
  Transmission Date: 20100115
  Serious: Yes (Death, Other)
  Sender: FDA-Public Use
  Company Number: PHHY2009FR29368

PATIENT
  Sex: Female

DRUGS (5)
  1. EXELON [Suspect]
     Indication: PARKINSONISM
     Dosage: 9.5 MG DAILY
     Route: 062
     Dates: start: 20090610
  2. EXELON [Suspect]
     Dosage: 4.6 MG DAILY
     Route: 062
  3. DEROXAT [Concomitant]
  4. PROPRANOLOL HCL [Concomitant]
     Dosage: 0.5 DF DAILY
     Dates: end: 20090710
  5. OMEPRAZOLE [Concomitant]
     Dosage: 20 MG DAILY

REACTIONS (5)
  - ASPIRATION [None]
  - CONDITION AGGRAVATED [None]
  - DELIRIUM [None]
  - HALLUCINATION, VISUAL [None]
  - HYPONATRAEMIA [None]
